FAERS Safety Report 6254675-5 (Version None)
Quarter: 2009Q3

REPORT INFORMATION
  Report Type: 
  Country: None (occurrence: None)
  Receive Date: 20090702
  Receipt Date: 20090630
  Transmission Date: 20100115
  Serious: No
  Sender: FDA-Public Use
  Company Number: DE-EISAI INC.-E2020-04601-SPO-DE

PATIENT
  Sex: Male
  Weight: 64 kg

DRUGS (5)
  1. ARICEPT [Suspect]
     Indication: DEMENTIA
     Route: 048
     Dates: start: 20090201, end: 20090501
  2. ALBUTEROL [Concomitant]
     Route: 048
  3. FORMOTEROL FUMARATE [Concomitant]
     Route: 048
  4. BUDESONIDE [Concomitant]
     Route: 048
  5. TIOTROPIUM BROMIDE [Interacting]
     Indication: DRUG USE FOR UNKNOWN INDICATION
     Dosage: UNKNOWN
     Route: 048

REACTIONS (2)
  - CHRONIC OBSTRUCTIVE PULMONARY DISEASE [None]
  - DYSPNOEA [None]
